FAERS Safety Report 24463244 (Version 1)
Quarter: 2024Q4

REPORT INFORMATION
  Report Type: Report from Study
  Country: US (occurrence: US)
  Receive Date: 20241018
  Receipt Date: 20241018
  Transmission Date: 20250115
  Serious: No
  Sender: ROCHE
  Company Number: US-ROCHE-2611837

PATIENT
  Age: 64 Year
  Sex: Male
  Weight: 104.0 kg

DRUGS (10)
  1. XOLAIR [Suspect]
     Active Substance: OMALIZUMAB
     Indication: Asthma
     Dosage: DATES OF TREATMENT: 21/MAY/2020, 05/NOV/2020, LAST INJECTION DATE: 11/5/2020, ANTICIPATED DATE OF TR
     Route: 058
  2. XOLAIR [Suspect]
     Active Substance: OMALIZUMAB
     Indication: Nasal polyps
  3. XOLAIR [Suspect]
     Active Substance: OMALIZUMAB
     Indication: Parosmia
  4. XOLAIR [Suspect]
     Active Substance: OMALIZUMAB
     Indication: Taste disorder
  5. ALBUTEROL SULFATE [Concomitant]
     Active Substance: ALBUTEROL SULFATE
  6. DULERA [Concomitant]
     Active Substance: FORMOTEROL FUMARATE DIHYDRATE\MOMETASONE FUROATE
  7. LEVETIRACETAM [Concomitant]
     Active Substance: LEVETIRACETAM
  8. MONTELUKAST [Concomitant]
     Active Substance: MONTELUKAST
  9. ROSUVASTATIN [Concomitant]
     Active Substance: ROSUVASTATIN
  10. VITAMIN C [Concomitant]
     Active Substance: ASCORBIC ACID

REACTIONS (4)
  - Off label use [Unknown]
  - Malaise [Unknown]
  - Dyspnoea paroxysmal nocturnal [Unknown]
  - Middle insomnia [Unknown]
